FAERS Safety Report 4787067-6 (Version None)
Quarter: 2005Q4

REPORT INFORMATION
  Report Type: 
  Country: None (occurrence: None)
  Receive Date: 20051004
  Receipt Date: 20050916
  Transmission Date: 20060501
  Serious: Yes (Other)
  Sender: FDA-Public Use
  Company Number: 2005AC01495

PATIENT
  Age: 35 Year
  Sex: Male

DRUGS (1)
  1. HYPERBARIC BUPIVACAINE [Suspect]
     Indication: SPINAL ANAESTHESIA
     Route: 037

REACTIONS (3)
  - IATROGENIC INJURY [None]
  - PERONEAL NERVE PALSY [None]
  - POST PROCEDURAL COMPLICATION [None]
